FAERS Safety Report 7538773-1 (Version None)
Quarter: 2011Q2

REPORT INFORMATION
  Report Type: 
  Country: None (occurrence: None)
  Receive Date: 20110610
  Receipt Date: 20101217
  Transmission Date: 20111010
  Serious: Yes (Hospitalization, Other)
  Sender: FDA-Public Use
  Company Number: US-BAYER-201022365NA

PATIENT
  Age: 36 Year
  Sex: Female
  Weight: 133.79 kg

DRUGS (12)
  1. ULTRACET [Concomitant]
  2. YASMIN [Suspect]
     Indication: ORAL CONTRACEPTION
     Route: 048
     Dates: start: 20020801, end: 20071201
  3. IBUPROFEN [Concomitant]
     Dosage: UNK
     Dates: start: 20050923, end: 20090615
  4. AMOXICILLIN [Concomitant]
     Dosage: UNK
  5. PROPOXYPHENE HYDROCHLORIDE [Concomitant]
     Indication: PAIN
  6. TRAMADOL HYDROCHLORIDE AND ACETAMINOPHEN [Concomitant]
     Indication: PROCEDURAL PAIN
  7. XYSAL [Concomitant]
     Indication: MULTIPLE ALLERGIES
  8. YASMIN [Suspect]
     Indication: MENORRHAGIA
  9. TYLENOL-500 [Concomitant]
     Route: 048
  10. AUGMENTIN '125' [Concomitant]
     Dosage: UNK
     Dates: start: 20071106
  11. HYDROCHLOROTHIAZIDE [Concomitant]
     Indication: HYPERTENSION
     Dosage: UNK
     Route: 048
     Dates: start: 20060421, end: 20090827
  12. METHOCARBAMOL [Concomitant]
     Indication: MUSCLE RELAXANT THERAPY
     Dosage: UNK
     Dates: start: 20071101

REACTIONS (10)
  - DYSPNOEA [None]
  - ENDOMETRIAL CANCER [None]
  - PULMONARY EMBOLISM [None]
  - DEEP VEIN THROMBOSIS [None]
  - PAIN IN EXTREMITY [None]
  - AORTIC INJURY [None]
  - OEDEMA PERIPHERAL [None]
  - OVARIAN CANCER [None]
  - MENORRHAGIA [None]
  - UTERINE CANCER [None]
